FAERS Safety Report 5363582-1 (Version None)
Quarter: 2007Q2

REPORT INFORMATION
  Report Type: 
  Country: None (occurrence: None)
  Receive Date: 20070620
  Receipt Date: 20070607
  Transmission Date: 20071010
  Serious: Yes (Other)
  Sender: FDA-Public Use
  Company Number: A0654898A

PATIENT
  Age: 86 Year
  Sex: Male

DRUGS (8)
  1. FLOVENT [Suspect]
     Dosage: 250MCG TWICE PER DAY
     Route: 055
  2. BIAXIN [Suspect]
     Dosage: 250MG TWICE PER DAY
     Route: 048
  3. NORVASC [Suspect]
     Dosage: 2.5MG TWICE PER DAY
     Route: 048
  4. ASPIRIN [Concomitant]
  5. ELTROXIN [Concomitant]
  6. HYDROCHLOROTHIAZIDE [Concomitant]
     Route: 048
  7. INHIBACE [Concomitant]
     Route: 048
  8. VENTOLIN HFA [Concomitant]
     Route: 055

REACTIONS (2)
  - DRUG INTERACTION [None]
  - OEDEMA PERIPHERAL [None]
